FAERS Safety Report 20187616 (Version 1)
Quarter: 2021Q4

REPORT INFORMATION
  Report Type: Spontaneous
  Country: CN (occurrence: CN)
  Receive Date: 20211215
  Receipt Date: 20211215
  Transmission Date: 20220304
  Serious: Yes (Hospitalization)
  Sender: FDA-Public Use
  Company Number: CN-MLMSERVICE-20211130-3245722-1

PATIENT
  Age: 47 Year
  Sex: Male

DRUGS (4)
  1. ABRAXANE [Suspect]
     Active Substance: PACLITAXEL
     Indication: Gallbladder cancer metastatic
     Route: 065
  2. CAMRELIZUMAB [Concomitant]
     Active Substance: CAMRELIZUMAB
     Indication: Gallbladder cancer metastatic
     Dosage: CYCLICAL
     Route: 065
  3. Immunoglobulin [Concomitant]
     Indication: Toxic epidermal necrolysis
     Dosage: FIVE DAYS AT A CUMULATIVE DOSE OF 150 G (} 2 G/KG)
     Route: 042
  4. METHYLPREDNISOLONE [Concomitant]
     Active Substance: METHYLPREDNISOLONE
     Indication: Toxic epidermal necrolysis
     Route: 065

REACTIONS (2)
  - Neurotoxicity [Unknown]
  - Toxic epidermal necrolysis [Unknown]
